FAERS Safety Report 22129618 (Version 1)
Quarter: 2023Q1

REPORT INFORMATION
  Report Type: Spontaneous
  Country: US (occurrence: None)
  Receive Date: 20230322
  Receipt Date: 20230322
  Transmission Date: 20230417
  Serious: Yes (Disabling)
  Sender: FDA-Public Use
  Company Number: None

PATIENT
  Sex: 0

DRUGS (2)
  1. LISINOPRIL [Suspect]
     Active Substance: LISINOPRIL
     Indication: Hypertension
     Dosage: OTHER QUANTITY : 1 TABLET(S);?FREQUENCY : DAILY;?
     Route: 048
     Dates: start: 20230321
  2. LISINOPRIL [Suspect]
     Active Substance: LISINOPRIL
     Indication: Marfan^s syndrome

REACTIONS (3)
  - Diplegia [None]
  - Somnolence [None]
  - Diplegia [None]

NARRATIVE: CASE EVENT DATE: 20230321
